FAERS Safety Report 5932864-4 (Version None)
Quarter: 2008Q4

REPORT INFORMATION
  Report Type: 
  Country: None (occurrence: None)
  Receive Date: 20081028
  Receipt Date: 20081020
  Transmission Date: 20090506
  Serious: Yes (Hospitalization)
  Sender: FDA-Public Use
  Company Number: HR-AVENTIS-200819013GDDC

PATIENT
  Age: 64 Year
  Sex: Female

DRUGS (4)
  1. ARAVA [Suspect]
     Indication: RHEUMATOID ARTHRITIS
     Route: 048
     Dates: start: 20080611, end: 20080611
  2. EUTHYROX [Concomitant]
     Route: 048
  3. MEDROL [Concomitant]
     Route: 048
  4. MOVALIS [Concomitant]
     Dosage: DOSE: UNK
     Route: 048

REACTIONS (4)
  - DYSPNOEA [None]
  - LEFT VENTRICULAR FAILURE [None]
  - ORTHOPNOEA [None]
  - PULMONARY OEDEMA [None]
